FAERS Safety Report 22632935 (Version 1)
Quarter: 2023Q2

REPORT INFORMATION
  Report Type: Other
  Country: IN (occurrence: None)
  Receive Date: 20230623
  Receipt Date: 20230623
  Transmission Date: 20230721
  Serious: Yes (Death)
  Sender: FDA-Public Use
  Company Number: IN-ROCHE-3298682

PATIENT
  Age: 65 Year
  Sex: Male

DRUGS (1)
  1. PERJETA [Suspect]
     Active Substance: PERTUZUMAB
     Indication: Colon cancer
     Route: 042
     Dates: start: 20230214

REACTIONS (2)
  - Death [Fatal]
  - Off label use [Unknown]
